FAERS Safety Report 7976804 (Version 17)
Quarter: 2014Q2

REPORT INFORMATION
  Report Type: Spontaneous
  Country: US (occurrence: US)
  Receive Date: 20110607
  Receipt Date: 20140422
  Transmission Date: 20141212
  Serious: Yes (Hospitalization, Other)
  Sender: FDA-Public Use
  Company Number: US-ASTRAZENECA-2011SE32185

PATIENT
  Age: 50 Year
  Sex: Female
  Weight: 81.6 kg

DRUGS (56)
  1. NEXIUM [Suspect]
     Indication: GASTROOESOPHAGEAL REFLUX DISEASE
     Route: 048
     Dates: start: 200501
  2. NEXIUM [Suspect]
     Indication: GASTROOESOPHAGEAL REFLUX DISEASE
     Route: 048
     Dates: start: 20050117
  3. NEXIUM [Suspect]
     Indication: GASTROOESOPHAGEAL REFLUX DISEASE
     Route: 048
     Dates: start: 200601, end: 200601
  4. NEXIUM [Suspect]
     Indication: GASTROOESOPHAGEAL REFLUX DISEASE
     Route: 048
     Dates: start: 200602, end: 200602
  5. NEXIUM [Suspect]
     Indication: GASTROOESOPHAGEAL REFLUX DISEASE
     Route: 048
     Dates: start: 20060306
  6. NEXIUM [Suspect]
     Indication: GASTROOESOPHAGEAL REFLUX DISEASE
     Route: 048
     Dates: start: 200602, end: 201104
  7. NEXIUM [Suspect]
     Indication: GASTROOESOPHAGEAL REFLUX DISEASE
     Route: 048
     Dates: start: 20070725
  8. NEXIUM [Suspect]
     Indication: GASTROOESOPHAGEAL REFLUX DISEASE
     Route: 048
     Dates: start: 20110320
  9. NEXIUM [Suspect]
     Indication: GASTROOESOPHAGEAL REFLUX DISEASE
     Route: 048
     Dates: start: 200602
  10. ZANTAC OTC [Concomitant]
     Dosage: 75 MG TO 150 MG
  11. ZANTAC OTC [Concomitant]
     Route: 048
     Dates: start: 20120105
  12. ZANTAC OTC [Concomitant]
     Dates: start: 201203
  13. TAGAMET [Concomitant]
  14. PEPCID OTC [Concomitant]
  15. VITAMINS SUPPLEMENTS/ VITAPAK [Concomitant]
     Dosage: DAILY
  16. FIBER SUPPLEMENT [Concomitant]
  17. PREMARIN [Concomitant]
     Route: 048
     Dates: start: 200602, end: 200906
  18. IBUPROFEN [Concomitant]
     Indication: HEADACHE
     Dates: start: 20060227
  19. IBUPROFEN [Concomitant]
     Indication: HEADACHE
     Route: 048
     Dates: start: 20060306
  20. IBUPROFEN [Concomitant]
     Indication: HEADACHE
     Dosage: AS NEEDED
     Dates: start: 200906
  21. TYLENOL [Concomitant]
     Indication: HEADACHE
     Dosage: AS NEEDED
  22. SUDAFED [Concomitant]
     Indication: SINUS CONGESTION
     Dosage: AS NEEDED
  23. PROPO-N/APAP [Concomitant]
     Dosage: 100-650 TAB
     Dates: start: 20050221
  24. CEPHADYN [Concomitant]
     Dosage: 650-50
  25. ETODOLAC [Concomitant]
     Dates: start: 20060123
  26. NESCON PD [Concomitant]
     Dosage: 25-275 MG
     Dates: start: 20060123
  27. HYDROCO/APAP [Concomitant]
     Dosage: 5-500 MG
     Dates: start: 20060127
  28. VIVELLE-DOT [Concomitant]
     Dosage: 0.1 MG DIS
     Dates: start: 20060220
  29. PHENAZOPYRID PLUS [Concomitant]
     Dates: start: 20060301
  30. LYRICA [Concomitant]
     Indication: PHARYNGEAL OEDEMA
     Dates: start: 20110610
  31. LYRICA [Concomitant]
     Indication: HYPERSENSITIVITY
     Dates: start: 20110610
  32. LYRICA [Concomitant]
     Indication: COMPLEX REGIONAL PAIN SYNDROME
     Dates: start: 20110610
  33. LYRICA [Concomitant]
     Indication: PHARYNGEAL OEDEMA
     Dates: start: 201009
  34. LYRICA [Concomitant]
     Indication: HYPERSENSITIVITY
     Dates: start: 201009
  35. LYRICA [Concomitant]
     Indication: COMPLEX REGIONAL PAIN SYNDROME
     Dates: start: 201009
  36. SULFASALAZINE [Concomitant]
     Indication: RECTAL HAEMORRHAGE
  37. SULFASALAZINE [Concomitant]
     Indication: COMPLEX REGIONAL PAIN SYNDROME
  38. GABAPENTIN [Concomitant]
     Dates: start: 201112
  39. CELEBREX [Concomitant]
  40. KOMASIDINE [Concomitant]
     Indication: ULCER
     Dates: start: 20110610
  41. CYMBALTA [Concomitant]
     Indication: MICTURITION URGENCY
     Dates: start: 201112
  42. CYMBALTA [Concomitant]
     Indication: COMPLEX REGIONAL PAIN SYNDROME
     Dates: start: 201112
  43. TRAMADOL [Concomitant]
     Dates: start: 201203
  44. FLEXERIL [Concomitant]
     Dates: start: 201203
  45. FLUTICASONE [Concomitant]
     Dosage: 500 MCG
     Dates: start: 20111028
  46. PHENAZOPYRID [Concomitant]
     Dates: start: 20120110
  47. CIPROFLOXACIN [Concomitant]
     Dates: start: 20120110
  48. TUMS [Concomitant]
  49. ALKA-SELTZER [Concomitant]
  50. MILK OF MAGNESIA [Concomitant]
  51. GAVISCON [Concomitant]
  52. PEPTO BISMOL [Concomitant]
  53. ROLAIDS [Concomitant]
  54. MYLANTA [Concomitant]
  55. SKELAXIN [Concomitant]
     Dates: start: 20040302
  56. METHOCARBAM [Concomitant]
     Dates: start: 20080922

REACTIONS (31)
  - Lower limb fracture [Unknown]
  - Bone disorder [Unknown]
  - Intestinal haemorrhage [Unknown]
  - Osteoporotic fracture [Unknown]
  - Abdominal adhesions [Unknown]
  - Foot fracture [Unknown]
  - Complex regional pain syndrome [Unknown]
  - Colitis ischaemic [Unknown]
  - Exostosis [Unknown]
  - Mononeuropathy [Unknown]
  - Abdominal pain [Unknown]
  - Osteoporosis [Unknown]
  - Gastric ulcer [Unknown]
  - Abasia [Unknown]
  - Hypokinesia [Unknown]
  - Spinal osteoarthritis [Unknown]
  - Osteoarthritis [Unknown]
  - Quality of life decreased [Unknown]
  - Tarsal tunnel syndrome [Unknown]
  - Gastritis erosive [Unknown]
  - Erosive duodenitis [Unknown]
  - Duodenal ulcer [Unknown]
  - Oesophageal ulcer [Unknown]
  - Hiatus hernia [Unknown]
  - Depression [Unknown]
  - Paraesthesia [Unknown]
  - Emotional distress [Unknown]
  - Vitamin D deficiency [Unknown]
  - Pain [Unknown]
  - Swelling [Unknown]
  - Erythema [Unknown]
